FAERS Safety Report 15988728 (Version 1)
Quarter: 2019Q1

REPORT INFORMATION
  Report Type: Spontaneous
  Country: US (occurrence: US)
  Receive Date: 20190221
  Receipt Date: 20190221
  Transmission Date: 20190418
  Serious: Yes (Other)
  Sender: FDA-Public Use
  Company Number: US-ZYDUS-033886

PATIENT
  Age: 21 Year
  Sex: Male

DRUGS (2)
  1. ONDANSETRON [Concomitant]
     Active Substance: ONDANSETRON
     Indication: GASTROENTERITIS
     Route: 065
  2. RISPERIDONE. [Suspect]
     Active Substance: RISPERIDONE
     Indication: SCHIZOPHRENIA
     Route: 065

REACTIONS (8)
  - Agitation [Recovering/Resolving]
  - Muscle contractions involuntary [Recovering/Resolving]
  - Tachycardia [Recovering/Resolving]
  - Unresponsive to stimuli [Recovering/Resolving]
  - Hyperhidrosis [Recovering/Resolving]
  - Mental status changes [Recovering/Resolving]
  - Muscle rigidity [Recovering/Resolving]
  - Malignant catatonia [Recovering/Resolving]
